FAERS Safety Report 7542626-2 (Version None)
Quarter: 2011Q2

REPORT INFORMATION
  Report Type: 
  Country: None (occurrence: None)
  Receive Date: 20110613
  Receipt Date: 20110606
  Transmission Date: 20111010
  Serious: Yes (Other)
  Sender: FDA-Public Use
  Company Number: PHHY2011US47221

PATIENT
  Age: 29 Year
  Sex: Female

DRUGS (5)
  1. LAMOTRIGINE [Suspect]
     Dosage: 50 MG, DAILY
  2. FLUOXETINE [Suspect]
     Indication: BIPOLAR DISORDER
     Dosage: 60 MG, UNK
  3. LAMOTRIGINE [Suspect]
     Indication: BIPOLAR DISORDER
     Dosage: 300 MG, DAILY
  4. LAMOTRIGINE [Suspect]
     Dosage: 25 MG, DAILY
  5. LAMOTRIGINE [Suspect]
     Dosage: 100 MG, DAILY

REACTIONS (6)
  - CHORIOAMNIONITIS [None]
  - ANXIETY [None]
  - MOOD SWINGS [None]
  - DRUG EXPOSURE DURING PREGNANCY [None]
  - IRRITABILITY [None]
  - GESTATIONAL HYPERTENSION [None]
